FAERS Safety Report 8563951-2 (Version None)
Quarter: 2012Q3

REPORT INFORMATION
  Report Type: 
  Country: None (occurrence: None)
  Receive Date: 20120803
  Receipt Date: 20120730
  Transmission Date: 20120928
  Serious: Yes (Hospitalization, Other)
  Sender: FDA-Public Use
  Company Number: PHHY2012TR065559

PATIENT
  Age: 51 Year
  Sex: Male

DRUGS (2)
  1. CLOZAPINE [Suspect]
     Indication: SCHIZOPHRENIA
     Dosage: 50 MG, DAILY
  2. CLOZAPINE [Suspect]
     Dosage: 500 MG, DAILY

REACTIONS (4)
  - ELEVATED MOOD [None]
  - OBSESSIVE-COMPULSIVE DISORDER [None]
  - COMPULSIVE HANDWASHING [None]
  - SCHIZOPHRENIA [None]
